FAERS Safety Report 4689611-6 (Version None)
Quarter: 2005Q2

REPORT INFORMATION
  Report Type: 
  Country: None (occurrence: None)
  Receive Date: 20050609
  Receipt Date: 20050324
  Transmission Date: 20051028
  Serious: Yes (Hospitalization)
  Sender: FDA-Public Use
  Company Number: 430008M05USA

PATIENT
  Age: 82 Year
  Sex: Male
  Weight: 70.7611 kg

DRUGS (8)
  1. NOVANTRONE [Suspect]
     Indication: CHEMOTHERAPY
     Dosage: 11 MG, 1 IN 1 WEEKS, INTRAVENOUS
     Route: 042
     Dates: start: 20041221
  2. PROCRIT [Suspect]
     Dosage: 80000 IU, 1 IN 2 WEEKS, SUBCUTANEOUS
     Route: 058
     Dates: start: 20041228, end: 20050113
  3. FLUDARA [Suspect]
     Dates: start: 20041220
  4. CYTOXAN [Suspect]
     Dates: start: 20041220
  5. PROVIGIL [Concomitant]
  6. PAXIL [Concomitant]
  7. COUMADIN [Concomitant]
  8. RITUXAN [Concomitant]

REACTIONS (4)
  - FATIGUE [None]
  - MENTAL STATUS CHANGES [None]
  - PYREXIA [None]
  - STAPHYLOCOCCAL BACTERAEMIA [None]
